FAERS Safety Report 16852788 (Version 1)
Quarter: 2019Q3

REPORT INFORMATION
  Report Type: Report from Study
  Country: EG (occurrence: EG)
  Receive Date: 20190925
  Receipt Date: 20190925
  Transmission Date: 20191005
  Serious: Yes (Hospitalization, Other)
  Sender: FDA-Public Use
  Company Number: EG-BAYER-2019-170893

PATIENT
  Sex: Female

DRUGS (4)
  1. CYMBATEX [Concomitant]
     Indication: NEURALGIA
     Dosage: UNK UNK, QD
  2. TRYPTIZOL [AMITRIPTYLINE PAMOATE] [Concomitant]
     Indication: NEURALGIA
     Dates: start: 20190906
  3. ONE ALPHA [Concomitant]
     Active Substance: ALFACALCIDOL
     Dosage: UNK UNK, QD
  4. BETAFERON [Suspect]
     Active Substance: INTERFERON BETA-1B
     Indication: MULTIPLE SCLEROSIS
     Dosage: UNK
     Dates: start: 2018

REACTIONS (12)
  - Diabetes mellitus [Not Recovered/Not Resolved]
  - Injection site haemorrhage [Recovered/Resolved]
  - Hypoaesthesia [Recovered/Resolved]
  - Balance disorder [Recovered/Resolved]
  - Gait disturbance [Recovered/Resolved]
  - Skin discolouration [Recovering/Resolving]
  - Injection site pain [Recovered/Resolved]
  - Injection site haemorrhage [Not Recovered/Not Resolved]
  - Pruritus allergic [Recovering/Resolving]
  - Musculoskeletal disorder [Recovered/Resolved]
  - Abdominal distension [Recovering/Resolving]
  - Gait disturbance [Recovered/Resolved]

NARRATIVE: CASE EVENT DATE: 2018
